FAERS Safety Report 13111364 (Version 1)
Quarter: 2017Q1

REPORT INFORMATION
  Report Type: Spontaneous
  Country: RO (occurrence: RO)
  Receive Date: 20170112
  Receipt Date: 20170112
  Transmission Date: 20170428
  Serious: Yes (Other)
  Sender: FDA-Public Use
  Company Number: RO-AMGEN-ROUSP2017004110

PATIENT
  Age: 56 Year
  Sex: Female
  Weight: 74 kg

DRUGS (1)
  1. ENBREL [Suspect]
     Active Substance: ETANERCEPT
     Indication: RHEUMATOID ARTHRITIS
     Dosage: UNK
     Route: 065

REACTIONS (3)
  - Feeling abnormal [Unknown]
  - Tuberculosis [Unknown]
  - Malaise [Unknown]
